FAERS Safety Report 5537064-8 (Version None)
Quarter: 2007Q4

REPORT INFORMATION
  Report Type: 
  Country: None (occurrence: None)
  Receive Date: 20071207
  Receipt Date: 20071126
  Transmission Date: 20080405
  Serious: Yes (Death, Hospitalization, Other)
  Sender: FDA-Public Use
  Company Number: US-AMGEN-US250438

PATIENT
  Sex: Male
  Weight: 90.8 kg

DRUGS (1)
  1. PROCRIT [Suspect]
     Indication: PREOPERATIVE CARE
     Dates: start: 20020101

REACTIONS (4)
  - COMA [None]
  - DEATH [None]
  - PNEUMONIA [None]
  - WEIGHT DECREASED [None]
